FAERS Safety Report 10362028 (Version 1)
Quarter: 2014Q3

REPORT INFORMATION
  Report Type: Spontaneous
  Country: GB (occurrence: GB)
  Receive Date: 20140805
  Receipt Date: 20140805
  Transmission Date: 20150326
  Serious: Yes (Hospitalization, Disabling, Other)
  Sender: FDA-Public Use
  Company Number: 2014SP004511

PATIENT
  Age: 34 Year
  Sex: Female
  Weight: 63.5 kg

DRUGS (5)
  1. RISEDRONATE SODIUM. [Concomitant]
     Active Substance: RISEDRONATE SODIUM
  2. VITAMIN D [Concomitant]
     Active Substance: CHOLECALCIFEROL
  3. LORATADINE. [Concomitant]
     Active Substance: LORATADINE
  4. METHOTREXATE [Suspect]
     Active Substance: METHOTREXATE
     Indication: RHEUMATOID ARTHRITIS
     Route: 051
  5. ETANERCEPT [Concomitant]
     Active Substance: ETANERCEPT
     Dates: start: 20140130

REACTIONS (6)
  - Dyspnoea [Not Recovered/Not Resolved]
  - Nausea [Not Recovered/Not Resolved]
  - Dizziness [Not Recovered/Not Resolved]
  - Hypoaesthesia [Not Recovered/Not Resolved]
  - Panic attack [Not Recovered/Not Resolved]
  - Migraine with aura [Not Recovered/Not Resolved]
